FAERS Safety Report 9284223 (Version 1)
Quarter: 2013Q2

REPORT INFORMATION
  Report Type: Spontaneous
  Country: DE (occurrence: DE)
  Receive Date: 20130510
  Receipt Date: 20130510
  Transmission Date: 20140414
  Serious: Yes (Hospitalization)
  Sender: FDA-Public Use
  Company Number: DE-TEVA-402458GER

PATIENT
  Sex: Female

DRUGS (2)
  1. SALBUTAMOL [Suspect]
     Indication: CYSTIC FIBROSIS
     Dosage: 4.5 MILLIGRAM DAILY;
     Route: 055
  2. KREON [Concomitant]
     Indication: CYSTIC FIBROSIS
     Route: 048

REACTIONS (2)
  - Caesarean section [Unknown]
  - Live birth [Unknown]
